FAERS Safety Report 6456319-6 (Version None)
Quarter: 2009Q4

REPORT INFORMATION
  Report Type: 
  Country: None (occurrence: None)
  Receive Date: 20091125
  Receipt Date: 20091116
  Transmission Date: 20100525
  Serious: Yes (Hospitalization, Other)
  Sender: FDA-Public Use
  Company Number: US-ROCHE-669473

PATIENT
  Age: 67 Year
  Sex: Female
  Weight: 75 kg

DRUGS (10)
  1. BONIVA [Suspect]
     Indication: OSTEOPOROSIS
     Dosage: OTHER INDICATION: OSTEOPENIA
     Route: 048
     Dates: start: 20080101, end: 20091019
  2. KLONOPIN [Suspect]
     Indication: DRUG USE FOR UNKNOWN INDICATION
     Route: 065
  3. LODINE [Concomitant]
  4. WELLBUTRIN XL [Concomitant]
  5. CENTRUM SILVER [Concomitant]
  6. REQUIP [Concomitant]
     Dosage: DRUG REQUIP XL
  7. LASIX [Concomitant]
  8. POTASSIUM CHLORIDE [Concomitant]
  9. NEXIUM [Concomitant]
  10. CARDIZEM [Concomitant]

REACTIONS (2)
  - COLITIS [None]
  - NEOPLASM [None]
